FAERS Safety Report 10699676 (Version 1)
Quarter: 2015Q1

REPORT INFORMATION
  Report Type: Spontaneous
  Country: US (occurrence: US)
  Receive Date: 20150109
  Receipt Date: 20150109
  Transmission Date: 20150721
  Serious: No
  Sender: FDA-Public Use
  Company Number: US-BIOGENIDEC-2015BI001742

PATIENT
  Age: 50 Year
  Sex: Female

DRUGS (11)
  1. AMANTADINE HCI [Concomitant]
  2. NEURONTIN [Concomitant]
     Active Substance: GABAPENTIN
  3. TECFIDERA [Suspect]
     Active Substance: DIMETHYL FUMARATE
     Indication: MULTIPLE SCLEROSIS
     Route: 048
  4. NORCO [Concomitant]
     Active Substance: ACETAMINOPHEN\HYDROCODONE BITARTRATE
  5. BACLOFEN. [Concomitant]
     Active Substance: BACLOFEN
  6. COLACE [Concomitant]
     Active Substance: DOCUSATE SODIUM
  7. EFFEXOR XR [Concomitant]
     Active Substance: VENLAFAXINE HYDROCHLORIDE
  8. REMERON [Concomitant]
     Active Substance: MIRTAZAPINE
  9. FOLIC ACID. [Concomitant]
     Active Substance: FOLIC ACID
  10. SENNA [Concomitant]
     Active Substance: SENNA LEAF\SENNOSIDES\SENNOSIDES A AND B
  11. MULTIVITAMINS [Concomitant]
     Active Substance: VITAMINS

REACTIONS (1)
  - Influenza [Unknown]
